FAERS Safety Report 11333910 (Version 1)
Quarter: 2015Q3

REPORT INFORMATION
  Report Type: Report from Study
  Country: AU (occurrence: AU)
  Receive Date: 20150803
  Receipt Date: 20150803
  Transmission Date: 20151125
  Serious: Yes (Other)
  Sender: FDA-Public Use
  Company Number: AU-REGENERON PHARMACEUTICALS, INC.-2014-20491

PATIENT

DRUGS (4)
  1. EYLEA [Suspect]
     Active Substance: AFLIBERCEPT
     Dosage: UNK, Q6WK
     Route: 031
  2. EYLEA [Suspect]
     Active Substance: AFLIBERCEPT
     Dosage: UNK Q4WK
     Route: 031
  3. EYLEA [Suspect]
     Active Substance: AFLIBERCEPT
     Dosage: UNK  Q6WK
     Route: 031
  4. EYLEA [Suspect]
     Active Substance: AFLIBERCEPT
     Indication: NEOVASCULAR AGE-RELATED MACULAR DEGENERATION
     Dosage: 2 MG, Q4WK
     Route: 031
     Dates: start: 201212

REACTIONS (6)
  - Retinal haemorrhage [Unknown]
  - Off label use [Unknown]
  - Drug ineffective [Unknown]
  - Ear disorder [Recovering/Resolving]
  - Neovascular age-related macular degeneration [Unknown]
  - Glare [Unknown]

NARRATIVE: CASE EVENT DATE: 20140911
